FAERS Safety Report 6895168-1 (Version None)
Quarter: 2010Q3

REPORT INFORMATION
  Report Type: 
  Country: None (occurrence: None)
  Receive Date: 20100802
  Receipt Date: 20100727
  Transmission Date: 20110219
  Serious: Yes (Life-Threatening, Hospitalization)
  Sender: FDA-Public Use
  Company Number: NL-ASTRAZENECA-2010SE35462

PATIENT
  Age: 37 Year
  Sex: Female

DRUGS (2)
  1. ZOMIG [Suspect]
     Indication: MIGRAINE
     Dosage: AS NECESSARY
     Route: 048
     Dates: start: 20030103, end: 20100612
  2. NORDETTE-28 [Suspect]
     Indication: MIGRAINE
     Dosage: CYCLICAL
     Route: 048
     Dates: start: 20100607, end: 20100612

REACTIONS (1)
  - CEREBRAL INFARCTION [None]
